FAERS Safety Report 8062221-9 (Version None)
Quarter: 2012Q1

REPORT INFORMATION
  Report Type: 
  Country: None (occurrence: None)
  Receive Date: 20120118
  Receipt Date: 20120103
  Transmission Date: 20120608
  Serious: Yes (Hospitalization)
  Sender: FDA-Public Use
  Company Number: 2012HGS-003067

PATIENT
  Age: 50 Year
  Sex: Female
  Weight: 88.4514 kg

DRUGS (19)
  1. VITAMIN B COMPLEX (VITAMIN B COMPLEX) (VITAMIN B COMPLEX) [Concomitant]
  2. NEURONTIN [Concomitant]
  3. ASPIRIN [Concomitant]
  4. CITRACAL PLUS VITAMIN D (CALCIUM CITRATE W/COLECALCIFEROL) (COLECALCIF [Concomitant]
  5. LISINOPRIL [Concomitant]
  6. BENLYSTA [Suspect]
     Dosage: 920 MG, 1 IN 28 D, INTRAVENOUS
     Route: 042
     Dates: start: 20111128, end: 20111227
  7. BIOTIN (BIOTIN) (BIOTIN) [Concomitant]
  8. VITAMIN E (TOCOPHEROL) (TOCOPHEROL) [Concomitant]
  9. NITROGLYCERIN SL (GYLCERYL TRINITRATE) (GYLCERYL TRINITRATE) [Concomitant]
  10. PREDNISONE [Concomitant]
  11. COREG (CARVEDILOL) (CARVEDILOL) [Concomitant]
  12. EFFIENT (PRASUGREL HYDROCHLORIDE) (DILTIAZEM HYDROCHLORIDE) [Concomitant]
  13. METOPROLOL SUCCINATE [Concomitant]
  14. VITAMIN B12 (CYANCOCOBALAMIN) (CYANOCOBALAMIN) [Concomitant]
  15. ZOCOR [Concomitant]
  16. PLAQUENIL (HYDROYXYCHLOROQUINE SULFATE) (HYDROXYCHLOROQUINE SULFATE) [Concomitant]
  17. FOLIC AICD (FOLIC ACID) (FOLIC ACID) [Concomitant]
  18. IMITREX (SUMATRIPTAN SUCCINATE) (SUMATRIPTAN SUCCINATE) [Concomitant]
  19. CARDIZEM (DILTIAZEM HYDROCHLORIDE) (DILTIAZEM HYDROCHLORIDE) [Concomitant]

REACTIONS (2)
  - NAUSEA [None]
  - MYOCARDIAL INFARCTION [None]
